FAERS Safety Report 9495253 (Version 1)
Quarter: 2013Q3

REPORT INFORMATION
  Report Type: Spontaneous
  Country: ES (occurrence: None)
  Receive Date: 20130828
  Receipt Date: 20130828
  Transmission Date: 20140515
  Serious: Yes (Other)
  Sender: FDA-Public Use
  Company Number: FK201303585

PATIENT
  Age: 67 Year
  Sex: Female

DRUGS (5)
  1. CALCITRIOL [Suspect]
     Indication: HYPOPARATHYROIDISM
     Dosage: 0.5UG, DAILY EXCEPT SATURDAY AND SUNDAY
  2. CALCIUM CARBONATE [Suspect]
     Indication: HYPOPARATHYROIDISM
  3. LEVOTHYROXINE (LEVOTHYROXINE) [Concomitant]
  4. PERINDOPRIL (PERINDOPRIL) [Concomitant]
  5. INDAPAMIDE (INDAPAMIDE) [Concomitant]

REACTIONS (4)
  - Drug interaction [None]
  - Metabolic alkalosis [None]
  - Renal failure [None]
  - Hypercalcaemia [None]
